FAERS Safety Report 25305496 (Version 3)
Quarter: 2025Q2

REPORT INFORMATION
  Report Type: Report from Study
  Country: CA (occurrence: CA)
  Receive Date: 20250513
  Receipt Date: 20250604
  Transmission Date: 20250717
  Serious: Yes (Death, Hospitalization)
  Sender: ABBVIE
  Company Number: CA-ABBVIE-6280153

PATIENT
  Age: 63 Year
  Sex: Female
  Weight: 54.5 kg

DRUGS (21)
  1. VENETOCLAX [Suspect]
     Active Substance: VENETOCLAX
     Indication: Acute myeloid leukaemia
     Route: 048
     Dates: start: 20250506, end: 20250506
  2. VENETOCLAX [Suspect]
     Active Substance: VENETOCLAX
     Indication: Acute myeloid leukaemia
     Route: 048
     Dates: start: 20250505, end: 20250505
  3. AZACITIDINE [Concomitant]
     Active Substance: AZACITIDINE
     Indication: Product used for unknown indication
  4. TUMS ULTRA [Concomitant]
     Active Substance: CALCIUM CARBONATE
     Indication: Product used for unknown indication
  5. ALLOPURINOL [Concomitant]
     Active Substance: ALLOPURINOL
     Indication: Product used for unknown indication
     Dosage: TAKE 1 TABLET ONCE DAILY FOR 3 DAYS
  6. METOCLOPRAMIDE HYDROCHLORIDE [Concomitant]
     Active Substance: METOCLOPRAMIDE HYDROCHLORIDE
     Indication: Product used for unknown indication
     Dosage: TAKE 2 TO 4 TABLETS(10MG-20MG) EVERY 4 HOURS AS NEEDED
  7. Jamp-Sennosides [Concomitant]
     Indication: Product used for unknown indication
     Route: 048
  8. DIAZEPAM [Concomitant]
     Active Substance: DIAZEPAM
     Indication: Product used for unknown indication
     Dosage: TAKE 1 TABLET BY MOUTH TWICE A DAY AS NEEDED
     Route: 048
  9. Apo-Oxycodone [Concomitant]
     Indication: Product used for unknown indication
     Dosage: CR ?TAKE 1 TABLET TWICE A DAY AS NEEDED?12 HOURS EXTENDED RELEASE TABLET?EXTENDED RELEASE TABLET
  10. MORPHINE SULFATE [Concomitant]
     Active Substance: MORPHINE SULFATE
     Indication: Product used for unknown indication
     Dosage: TAKE 1 OR 2 TABLETS EVERY 4 HOURS AS NEEDED
  11. Bisoprolol teva [Concomitant]
     Indication: Product used for unknown indication
     Dosage: TAKE 1/2 TABLET ONCE DAILY, 5MG
  12. OSELTAMIVIR PHOSPHATE [Concomitant]
     Active Substance: OSELTAMIVIR PHOSPHATE
     Indication: Product used for unknown indication
     Dosage: TAKE 1 CAPSULE TWICE A DAY FOR 4 DAYS
  13. CICLESONIDE [Concomitant]
     Active Substance: CICLESONIDE
     Indication: Product used for unknown indication
     Dosage: AEROSOL?CICLESONIDE 200 MCG/ ACTUATION?SHAKE WELL AND INHALE 2 PUFFS ONCE DAILY AS DIRECTED
  14. NYSTATIN [Concomitant]
     Active Substance: NYSTATIN
     Indication: Product used for unknown indication
     Dosage: ORAL SUSPENSION?100,000U/ML?SWISH AND SWALLOW 5ML FOUR TIMES A DAY FOR 7 DAYS
  15. Betahistine HCL [Concomitant]
     Indication: Product used for unknown indication
     Dosage: TAKE 1 TABLET TWICE A DAY AS NEEDED
  16. DICLOFENAC SODIUM [Concomitant]
     Active Substance: DICLOFENAC SODIUM
     Indication: Product used for unknown indication
  17. OMEPRAZOLE [Concomitant]
     Active Substance: OMEPRAZOLE
     Indication: Product used for unknown indication
  18. CLARITHROMYCIN [Concomitant]
     Active Substance: CLARITHROMYCIN
     Indication: Product used for unknown indication
     Dosage: TAKE 1 TABLET TWICE A DAY FOR 14 DAYS
  19. AMOXICILLIN [Concomitant]
     Active Substance: AMOXICILLIN
     Indication: Product used for unknown indication
     Dosage: TAKE 2 CAPSULES(1000MG) TWICE A DAY FOR 2 WEEKS
  20. NAPROXEN [Concomitant]
     Active Substance: NAPROXEN
     Indication: Product used for unknown indication
  21. TRAZODONE HCL [Concomitant]
     Active Substance: TRAZODONE HYDROCHLORIDE
     Indication: Product used for unknown indication

REACTIONS (4)
  - Respiratory failure [Fatal]
  - Blast cell count increased [Not Recovered/Not Resolved]
  - Pain [Unknown]
  - Pneumonia [Fatal]

NARRATIVE: CASE EVENT DATE: 20250501
